FAERS Safety Report 19734825 (Version 1)
Quarter: 2021Q3

REPORT INFORMATION
  Report Type: Spontaneous
  Country: CA (occurrence: CA)
  Receive Date: 20210823
  Receipt Date: 20210823
  Transmission Date: 20211014
  Serious: Yes (Death, Hospitalization, Disabling, Other)
  Sender: FDA-Public Use
  Company Number: CA-009507513-2108CAN004779

PATIENT
  Age: 65 Year
  Sex: Male
  Weight: 88 kg

DRUGS (6)
  1. TEMODAL [Suspect]
     Active Substance: TEMOZOLOMIDE
     Dosage: 55 MILLIGRAM, QD
     Route: 048
  2. DILANTIN [Concomitant]
     Active Substance: PHENYTOIN
  3. DEXAMETHASONE. [Concomitant]
     Active Substance: DEXAMETHASONE
     Route: 065
  4. TEMODAL [Suspect]
     Active Substance: TEMOZOLOMIDE
     Indication: GLIOBLASTOMA
     Dosage: 155 MILLIGRAM, QD
     Route: 048
  5. PANTOPRAZOLE [Concomitant]
     Active Substance: PANTOPRAZOLE
  6. DAPSONE. [Concomitant]
     Active Substance: DAPSONE

REACTIONS (5)
  - Thrombocytopenia [Fatal]
  - Necrotising fasciitis [Fatal]
  - Neutrophil count decreased [Fatal]
  - Neutropenia [Fatal]
  - Sepsis [Fatal]
